FAERS Safety Report 7157278-3 (Version None)
Quarter: 2010Q4

REPORT INFORMATION
  Report Type: 
  Country: None (occurrence: None)
  Receive Date: 20101214
  Receipt Date: 20101210
  Transmission Date: 20110411
  Serious: Yes (Death, Hospitalization)
  Sender: FDA-Public Use
  Company Number: CHPA2010US18860

PATIENT
  Age: 16 Month

DRUGS (1)
  1. IBUPROFEN [Suspect]
     Dosage: 469MG/KG, UNK

REACTIONS (7)
  - APNOEA [None]
  - ASPIRATION [None]
  - CONVULSION [None]
  - INCORRECT DOSE ADMINISTERED [None]
  - OVERDOSE [None]
  - PNEUMONIA ASPIRATION [None]
  - SEPSIS [None]
